FAERS Safety Report 4913049-7 (Version None)
Quarter: 2006Q1

REPORT INFORMATION
  Report Type: 
  Country: None (occurrence: None)
  Receive Date: 20060210
  Receipt Date: 20060201
  Transmission Date: 20060701
  Serious: Yes (Death, Hospitalization)
  Sender: FDA-Public Use
  Company Number: 163-20785-05120515

PATIENT
  Age: 80 Year
  Sex: Female

DRUGS (5)
  1. THALOMID [Suspect]
     Indication: MULTIPLE MYELOMA
     Dosage: 200 MG, DAILY, ORAL
     Route: 048
     Dates: start: 20050505, end: 20051001
  2. LEVOXYL [Concomitant]
  3. NEXIUM [Concomitant]
  4. LORCET-HD [Concomitant]
  5. ARANESP [Concomitant]

REACTIONS (5)
  - DYSPNOEA EXERTIONAL [None]
  - NAUSEA [None]
  - OESOPHAGEAL ADENOCARCINOMA [None]
  - PALPITATIONS [None]
  - VOMITING [None]
